FAERS Safety Report 12426529 (Version 1)
Quarter: 2016Q2

REPORT INFORMATION
  Report Type: Report from Study
  Country: IT (occurrence: IT)
  Receive Date: 20160601
  Receipt Date: 20160601
  Transmission Date: 20160815
  Serious: Yes (Hospitalization)
  Sender: FDA-Public Use
  Company Number: IT-ELI_LILLY_AND_COMPANY-IT201605011089

PATIENT
  Age: 77 Year
  Sex: Male

DRUGS (4)
  1. CETUXIMAB [Suspect]
     Active Substance: CETUXIMAB
     Indication: SQUAMOUS CELL CARCINOMA OF HEAD AND NECK
     Dosage: 744 MG, WEEKLY (1/W)
     Route: 042
     Dates: start: 20160218
  2. CETUXIMAB [Suspect]
     Active Substance: CETUXIMAB
     Dosage: 465 MG, WEEKLY (1/W)
     Route: 042
     Dates: end: 20160421
  3. CARBOPLATIN. [Concomitant]
     Active Substance: CARBOPLATIN
     Indication: SQUAMOUS CELL CARCINOMA OF HEAD AND NECK
     Dosage: 430 MG, UNKNOWN
     Route: 065
     Dates: start: 20160218
  4. CARBOPLATIN. [Concomitant]
     Active Substance: CARBOPLATIN
     Dosage: 393.6 MG, UNKNOWN
     Route: 065
     Dates: end: 20160407

REACTIONS (1)
  - Radiation dysphagia [Recovered/Resolved with Sequelae]

NARRATIVE: CASE EVENT DATE: 20160427
